FAERS Safety Report 16921659 (Version 1)
Quarter: 2019Q4

REPORT INFORMATION
  Report Type: Spontaneous
  Country: DK (occurrence: DK)
  Receive Date: 20191015
  Receipt Date: 20191015
  Transmission Date: 20200122
  Serious: Yes (Hospitalization, Disabling)
  Sender: FDA-Public Use
  Company Number: DK-JNJFOC-20191009993

PATIENT
  Age: 23 Year
  Sex: Male

DRUGS (10)
  1. RISPERDAL [Suspect]
     Active Substance: RISPERIDONE
     Route: 048
     Dates: start: 2014
  2. AKINETON [Concomitant]
     Active Substance: BIPERIDEN HYDROCHLORIDE
     Indication: TIC
     Route: 065
  3. RISPERDAL [Suspect]
     Active Substance: RISPERIDONE
     Route: 048
     Dates: start: 2015
  4. BACLOFEN. [Concomitant]
     Active Substance: BACLOFEN
     Indication: TIC
     Route: 065
  5. MADOPAR [Concomitant]
     Active Substance: BENSERAZIDE HYDROCHLORIDE\LEVODOPA
     Indication: TIC
     Route: 065
     Dates: start: 2016
  6. RISPERDAL [Suspect]
     Active Substance: RISPERIDONE
     Indication: TIC
     Route: 048
     Dates: start: 200801
  7. RISPERDAL [Suspect]
     Active Substance: RISPERIDONE
     Route: 048
     Dates: end: 20171211
  8. NITOMAN [Concomitant]
     Active Substance: TETRABENAZINE
     Route: 065
     Dates: start: 200907, end: 200910
  9. BOTULINUM TOXIN TYPE A [Concomitant]
     Active Substance: BOTULINUM TOXIN TYPE A
     Indication: TIC
     Route: 065
     Dates: start: 2016
  10. NITOMAN [Concomitant]
     Active Substance: TETRABENAZINE
     Indication: TIC
     Route: 065
     Dates: start: 2016

REACTIONS (8)
  - Pain [Not Recovered/Not Resolved]
  - Paraesthesia [Not Recovered/Not Resolved]
  - Torticollis [Not Recovered/Not Resolved]
  - Chest discomfort [Recovered/Resolved]
  - Ligament sprain [Unknown]
  - Off label use [Unknown]
  - Hypertonia [Not Recovered/Not Resolved]
  - Product use in unapproved indication [Unknown]

NARRATIVE: CASE EVENT DATE: 201509
